FAERS Safety Report 9438978 (Version 1)
Quarter: 2013Q3

REPORT INFORMATION
  Report Type: Spontaneous
  Country: AT (occurrence: AT)
  Receive Date: 20130802
  Receipt Date: 20130802
  Transmission Date: 20140515
  Serious: Yes (Death, Other)
  Sender: FDA-Public Use
  Company Number: PHHY2013AT082672

PATIENT
  Age: 86 Year
  Sex: Male

DRUGS (1)
  1. EBETREXAT [Suspect]
     Dosage: 10 MG, UNK
     Route: 048
     Dates: start: 201206, end: 201206

REACTIONS (3)
  - Death [Fatal]
  - Myocardial infarction [Unknown]
  - Overdose [Unknown]
